FAERS Safety Report 24293374 (Version 1)
Quarter: 2024Q3

REPORT INFORMATION
  Report Type: Spontaneous
  Country: US (occurrence: None)
  Receive Date: 20240906
  Receipt Date: 20240906
  Transmission Date: 20241016
  Serious: No
  Sender: DOMPE FARMACEUTICI
  Company Number: US-FARMAPROD-202401-0054

PATIENT
  Age: 85 Year
  Sex: Female
  Weight: 83.91 kg

DRUGS (11)
  1. OXERVATE [Suspect]
     Active Substance: CENEGERMIN-BKBJ
     Indication: Neurotrophic keratopathy
     Route: 047
     Dates: start: 20231129
  2. OXERVATE [Suspect]
     Active Substance: CENEGERMIN-BKBJ
  3. VALACYCLOVIR [Concomitant]
     Active Substance: VALACYCLOVIR HYDROCHLORIDE
  4. METOPROLOL SUCCINATE [Concomitant]
     Active Substance: METOPROLOL SUCCINATE
  5. ATORVASTATIN CALCIUM [Concomitant]
     Active Substance: ATORVASTATIN CALCIUM
  6. CLOPIDOGREL [Concomitant]
     Active Substance: CLOPIDOGREL BISULFATE
  7. LISINOPRIL AND HYDROCHLOROTHIAZIDE [Concomitant]
     Active Substance: HYDROCHLOROTHIAZIDE\LISINOPRIL
  8. ERYTHROMYCIN [Concomitant]
     Active Substance: ERYTHROMYCIN
  9. MOXIFLOXACIN [Concomitant]
     Active Substance: MOXIFLOXACIN
  10. SYSTANE (HYPROMELLOSE 2910 (4000 MPA.S)) [Concomitant]
     Active Substance: HYPROMELLOSE 2910 (4000 MPA.S)
     Dosage: 0.3 %-0.4%
  11. TIMOLOL MALEATE [Concomitant]
     Active Substance: TIMOLOL MALEATE

REACTIONS (6)
  - Lacrimation increased [Unknown]
  - Photophobia [Unknown]
  - Eye pain [Unknown]
  - Ocular hyperaemia [Unknown]
  - Erythema of eyelid [Unknown]
  - Abdominal discomfort [Unknown]

NARRATIVE: CASE EVENT DATE: 20240104
